FAERS Safety Report 8981133 (Version 3)
Quarter: 2013Q1

REPORT INFORMATION
  Report Type: Spontaneous
  Country: US (occurrence: US)
  Receive Date: 20121221
  Receipt Date: 20130325
  Transmission Date: 20140127
  Serious: No
  Sender: FDA-Public Use
  Company Number: US-009507513-1212USA001663

PATIENT
  Sex: Male
  Weight: 24.36 kg

DRUGS (3)
  1. ASMANEX TWISTHALER [Suspect]
     Indication: HYPERSENSITIVITY
     Dosage: 110 MICROGRAM, QPM
     Route: 055
     Dates: start: 201209
  2. NASONEX [Concomitant]
     Indication: RHINITIS ALLERGIC
     Dosage: UNK UNK, QD
     Route: 045
     Dates: start: 20121022
  3. PROAIR HFA [Concomitant]
     Indication: BRONCHITIS
     Dosage: UNK
     Route: 048
     Dates: start: 20121022

REACTIONS (4)
  - Nasal congestion [Recovering/Resolving]
  - Drug dose omission [Unknown]
  - Product quality issue [Unknown]
  - Device breakage [Unknown]
